FAERS Safety Report 12505193 (Version 1)
Quarter: 2016Q2

REPORT INFORMATION
  Report Type: Spontaneous
  Country: PE (occurrence: PE)
  Receive Date: 20160628
  Receipt Date: 20160628
  Transmission Date: 20160815
  Serious: Yes (Hospitalization, Other)
  Sender: FDA-Public Use
  Company Number: PE-GLAXOSMITHKLINE-PE2016GSK090789

PATIENT
  Age: 79 Year
  Sex: Male

DRUGS (1)
  1. SERETIDE [Suspect]
     Active Substance: FLUTICASONE PROPIONATE\SALMETEROL XINAFOATE
     Indication: ASTHMA
     Dosage: 250 UG, QID
     Route: 055
     Dates: start: 20151129

REACTIONS (1)
  - Hernia repair [Not Recovered/Not Resolved]

NARRATIVE: CASE EVENT DATE: 20160315
